FAERS Safety Report 5477510-1 (Version None)
Quarter: 2007Q4

REPORT INFORMATION
  Report Type: 
  Country: None (occurrence: None)
  Receive Date: 20071004
  Receipt Date: 20070927
  Transmission Date: 20080405
  Serious: Yes (Hospitalization)
  Sender: FDA-Public Use
  Company Number: AU-ABBOTT-07P-008-0417112-00

PATIENT
  Sex: Male

DRUGS (3)
  1. KALETRA [Suspect]
     Indication: ANTIVIRAL PROPHYLAXIS
     Route: 048
     Dates: start: 20060807, end: 20060904
  2. KALETRA [Suspect]
     Indication: ANTIVIRAL PROPHYLAXIS
     Route: 048
     Dates: start: 20060808
  3. TRUVADA [Concomitant]
     Indication: ANTIVIRAL PROPHYLAXIS
     Dosage: 300/200 MG
     Dates: start: 20060807

REACTIONS (1)
  - HIP FRACTURE [None]
